FAERS Safety Report 17835392 (Version 5)
Quarter: 2020Q3

REPORT INFORMATION
  Report Type: Report from Study
  Country: US (occurrence: US)
  Receive Date: 20200528
  Receipt Date: 20200820
  Transmission Date: 20201103
  Serious: Yes (Hospitalization)
  Sender: FDA-Public Use
  Company Number: US-PFIZER INC-2020194519

PATIENT
  Age: 72 Year
  Sex: Female
  Weight: 75.9 kg

DRUGS (4)
  1. AVELUMAB [Suspect]
     Active Substance: AVELUMAB
     Indication: RENAL CELL CARCINOMA
     Dosage: 786 MG, EVERY 2 WEEKS
     Route: 042
     Dates: start: 20170202
  2. INLYTA [Suspect]
     Active Substance: AXITINIB
     Dosage: 2 MG 2X/DAY CONTINUOUS
     Route: 048
     Dates: start: 20170525
  3. INLYTA [Suspect]
     Active Substance: AXITINIB
     Indication: RENAL CELL CARCINOMA
     Dosage: 5 MG 2X/DAY CONTINUOUS
     Route: 048
     Dates: start: 20170202, end: 20170426
  4. INLYTA [Suspect]
     Active Substance: AXITINIB
     Dosage: 3 MG 2X/DAY CONTINUOUS
     Route: 048
     Dates: start: 20170427, end: 20170524

REACTIONS (1)
  - Acute kidney injury [Recovered/Resolved]

NARRATIVE: CASE EVENT DATE: 20200513
